FAERS Safety Report 11822791 (Version 3)
Quarter: 2016Q1

REPORT INFORMATION
  Report Type: Spontaneous
  Country: US (occurrence: US)
  Receive Date: 20151210
  Receipt Date: 20160308
  Transmission Date: 20160525
  Serious: No
  Sender: FDA-Public Use
  Company Number: US-JNJFOC-20150617077

PATIENT
  Sex: Male

DRUGS (8)
  1. IMBRUVICA [Suspect]
     Active Substance: IBRUTINIB
     Indication: CHRONIC LYMPHOCYTIC LEUKAEMIA
     Dosage: 420 MG, QD
     Route: 048
     Dates: start: 20141105
  2. PREDNISONE. [Concomitant]
     Active Substance: PREDNISONE
  3. ELIQUIS [Suspect]
     Active Substance: APIXABAN
     Indication: PRODUCT USED FOR UNKNOWN INDICATION
     Route: 065
  4. BENICAR [Concomitant]
     Active Substance: OLMESARTAN MEDOXOMIL
  5. OFLOXACIN. [Concomitant]
     Active Substance: OFLOXACIN
  6. TOCOPHEROL [Concomitant]
     Active Substance: TOCOPHEROL
  7. IBUPROFEN. [Concomitant]
     Active Substance: IBUPROFEN
  8. ZINC [Concomitant]
     Active Substance: ZINC\ZINC CHLORIDE

REACTIONS (4)
  - Contusion [Not Recovered/Not Resolved]
  - Alopecia [Recovering/Resolving]
  - Skin atrophy [Not Recovered/Not Resolved]
  - Clumsiness [Unknown]
